FAERS Safety Report 10149305 (Version 1)
Quarter: 2014Q2

REPORT INFORMATION
  Report Type: Spontaneous
  Country: KR (occurrence: None)
  Receive Date: 20140430
  Receipt Date: 20140430
  Transmission Date: 20141212
  Serious: Yes (Death, Other)
  Sender: FDA-Public Use
  Company Number: FK201401493

PATIENT
  Age: 61 Year
  Sex: Male

DRUGS (3)
  1. IFOSFAMIDE (MANUFACTURER UNKNOWN) (IFOSFAMIDE) (IFOSFAMIDE) [Suspect]
     Indication: INFLAMMATORY MALIGNANT FIBROUS HISTIOCYTOMA
  2. ADRIAMYCIN (DOXORUBICIN) [Concomitant]
  3. MESNA (MESNA) [Concomitant]

REACTIONS (10)
  - Metabolic acidosis [None]
  - Nephrogenic diabetes insipidus [None]
  - Fanconi syndrome [None]
  - Asthenia [None]
  - Polyuria [None]
  - Dehydration [None]
  - Hypernatraemia [None]
  - Hypokalaemia [None]
  - Hypercalcaemia [None]
  - Hypophosphataemia [None]
